FAERS Safety Report 9123689 (Version 1)
Quarter: 2013Q1

REPORT INFORMATION
  Report Type: Spontaneous
  Country: FR (occurrence: FR)
  Receive Date: 20130227
  Receipt Date: 20130227
  Transmission Date: 20140127
  Serious: Yes (Death, Hospitalization)
  Sender: FDA-Public Use
  Company Number: FR-PFIZER INC-2013068962

PATIENT
  Age: 18 Year
  Sex: Female

DRUGS (1)
  1. MINIDRIL [Suspect]
     Indication: CONTRACEPTION
     Dosage: ETHINYLESTRADIOL 30 UG/ LEVONORGESTREL 150 UG
     Route: 048
     Dates: start: 201012, end: 20111223

REACTIONS (1)
  - Cerebral venous thrombosis [Fatal]
